FAERS Safety Report 8535566-3 (Version None)
Quarter: 2012Q3

REPORT INFORMATION
  Report Type: 
  Country: None (occurrence: None)
  Receive Date: 20120717
  Receipt Date: 20120717
  Transmission Date: 20120928
  Serious: Yes (Other)
  Sender: FDA-Public Use
  Company Number: None

PATIENT
  Age: 43 Year
  Sex: Male
  Weight: 122.7 kg

DRUGS (3)
  1. ALPRAZOLAM [Suspect]
     Dosage: 2MG FOUR TIMES A DAY PO
     Route: 048
     Dates: start: 20120619
  2. ALPRAZOLAM 2MG PUREPAC [Suspect]
     Indication: DEPRESSION
     Dosage: 2MG FOUR TIMES A DAY PO
     Route: 048
     Dates: start: 20101201, end: 20120601
  3. ALPRAZOLAM 2MG PUREPAC [Suspect]
     Indication: BIPOLAR DISORDER
     Dosage: 2MG FOUR TIMES A DAY PO
     Route: 048
     Dates: start: 20101201, end: 20120601

REACTIONS (4)
  - PRODUCT SUBSTITUTION ISSUE [None]
  - TREATMENT FAILURE [None]
  - PRODUCT QUALITY ISSUE [None]
  - UNEVALUABLE EVENT [None]
